FAERS Safety Report 26017693 (Version 1)
Quarter: 2025Q4

REPORT INFORMATION
  Report Type: Report from Study
  Country: US (occurrence: US)
  Receive Date: 20251110
  Receipt Date: 20251110
  Transmission Date: 20260118
  Serious: Yes (Other)
  Sender: TAKEDA
  Company Number: US-TAKEDA-2025TUS097767

PATIENT
  Age: 77 Year
  Sex: Male

DRUGS (1)
  1. VEDOLIZUMAB [Suspect]
     Active Substance: VEDOLIZUMAB
     Indication: Crohn^s disease
     Dosage: 300 MILLIGRAM

REACTIONS (16)
  - Pancreatic neuroendocrine tumour [Unknown]
  - Crohn^s disease [Unknown]
  - Pancreatitis chronic [Unknown]
  - Intestinal obstruction [Unknown]
  - Type 2 diabetes mellitus [Unknown]
  - Large intestinal stenosis [Unknown]
  - Abscess intestinal [Unknown]
  - Metabolic dysfunction-associated liver disease [Unknown]
  - Weight decreased [Unknown]
  - Functional gastrointestinal disorder [Unknown]
  - Diverticulum intestinal [Unknown]
  - Early satiety [Unknown]
  - Dizziness [Unknown]
  - Constipation [Unknown]
  - Haemorrhoids [Unknown]
  - Abdominal distension [Unknown]
